FAERS Safety Report 8530545-4 (Version None)
Quarter: 2012Q3

REPORT INFORMATION
  Report Type: 
  Country: None (occurrence: None)
  Receive Date: 20120723
  Receipt Date: 20120711
  Transmission Date: 20120928
  Serious: Yes (Other)
  Sender: FDA-Public Use
  Company Number: JP-VERTEX PHARMACEUTICALS INC.-AE-2012-007857

PATIENT
  Age: 60 Year
  Sex: Male

DRUGS (13)
  1. RIBAVIRIN [Concomitant]
     Route: 048
     Dates: start: 20120425, end: 20120524
  2. FAMOTIDINE [Concomitant]
     Route: 048
  3. BISOPROLOL FUMARATE [Concomitant]
     Route: 048
  4. ALPRAZOLAM [Concomitant]
     Route: 048
  5. RIBAVIRIN [Concomitant]
     Route: 048
     Dates: start: 20120411
  6. ATELEC [Concomitant]
     Route: 048
  7. FEBURIC [Concomitant]
     Route: 048
  8. TELAVIC (TELAPREVIR) [Suspect]
     Indication: HEPATITIS C
     Route: 048
     Dates: start: 20120411, end: 20120518
  9. PEGINTERFERON ALFA-2B [Concomitant]
     Route: 058
     Dates: start: 20120411
  10. PEGINTERFERON ALFA-2B [Concomitant]
     Route: 058
     Dates: end: 20120529
  11. PEGINTERFERON ALFA-2B [Concomitant]
     Route: 058
     Dates: start: 20120605
  12. LEVOTHYROXINE SODIUM [Concomitant]
     Route: 048
  13. RIBAVIRIN [Concomitant]
     Route: 048
     Dates: start: 20120525

REACTIONS (1)
  - ERYTHEMA [None]
